FAERS Safety Report 7342879-X (Version None)
Quarter: 2011Q1

REPORT INFORMATION
  Report Type: 
  Country: None (occurrence: None)
  Receive Date: 20110310
  Receipt Date: 20110302
  Transmission Date: 20110831
  Serious: Yes (Life-Threatening, Hospitalization)
  Sender: FDA-Public Use
  Company Number: IL-NOVOPROD-324340

PATIENT
  Age: 16 Year
  Sex: Male

DRUGS (1)
  1. NOVOSEVEN [Suspect]
     Indication: HAEMORRHAGE
     Dosage: 11 MG, QD
     Dates: start: 20110112

REACTIONS (2)
  - HEPATIC FAILURE [None]
  - HEPATIC ARTERY THROMBOSIS [None]
